FAERS Safety Report 8785730 (Version 3)
Quarter: 2013Q3

REPORT INFORMATION
  Report Type: Report from Study
  Country: JP (occurrence: JP)
  Receive Date: 20120914
  Receipt Date: 20130701
  Transmission Date: 20140515
  Serious: Yes (Life-Threatening)
  Sender: FDA-Public Use
  Company Number: JP-VERTEX PHARMACEUTICAL INC.-AE-2012-008852

PATIENT
  Age: 68 Year
  Sex: Male

DRUGS (14)
  1. VX-950 (TELAPREVIR) [Suspect]
     Indication: CHRONIC HEPATITIS C
     Dosage: 2250 MG, QD
     Route: 048
     Dates: start: 20120316, end: 20120529
  2. VX-950 (TELAPREVIR) [Suspect]
     Dosage: 1500 MG, QD
     Route: 048
     Dates: start: 20120530, end: 20120604
  3. PEGINTRON [Suspect]
     Indication: CHRONIC HEPATITIS C
     Dosage: 50 ?G, QW
     Route: 058
     Dates: start: 20120316, end: 20120322
  4. PEGINTRON [Suspect]
     Dosage: 0.38 ?G/KG, QW
     Route: 058
     Dates: start: 20120323, end: 20120403
  5. PEGINTRON [Suspect]
     Dosage: 0.61 ?G/KG, QW
     Route: 058
     Dates: start: 20120404, end: 20120417
  6. PEGINTRON [Suspect]
     Dosage: 0.77 ?G/KG, QW
     Route: 058
     Dates: start: 20120418, end: 20120424
  7. PEGINTRON [Suspect]
     Dosage: 0.38 ?G/KG, QW
     Route: 058
     Dates: start: 20120425, end: 20120501
  8. PEGINTRON [Suspect]
     Dosage: 0.61 ?G/KG, QW
     Route: 058
     Dates: start: 20120502, end: 20120529
  9. PEGINTRON [Suspect]
     Dosage: 0.38 ?G/KG, QW
     Route: 058
     Dates: start: 20120530, end: 20120530
  10. REBETOL [Suspect]
     Indication: CHRONIC HEPATITIS C
     Dosage: 800 MG, QD
     Route: 048
     Dates: start: 20120316, end: 20120424
  11. REBETOL [Suspect]
     Dosage: 600 MG, QD
     Route: 048
     Dates: start: 20120425, end: 20120522
  12. REBETOL [Suspect]
     Dosage: 200 MG, QD
     Route: 048
     Dates: start: 20120523, end: 20120529
  13. REBETOL [Suspect]
     Dosage: 100 MG, QD
     Route: 048
     Dates: start: 20120530, end: 20120603
  14. NEO-MINOPHAGEN C [Concomitant]
     Dosage: 60 ML, QD
     Route: 042
     Dates: end: 20120425

REACTIONS (1)
  - Acute myocardial infarction [Recovered/Resolved]
